FAERS Safety Report 14539713 (Version 6)
Quarter: 2018Q2

REPORT INFORMATION
  Report Type: Spontaneous
  Country: FR (occurrence: FR)
  Receive Date: 20180216
  Receipt Date: 20180525
  Transmission Date: 20180711
  Serious: Yes (Other)
  Sender: FDA-Public Use
  Company Number: FR-AUROBINDO-AUR-APL-2018-007582

PATIENT
  Age: 8 Month
  Sex: Female

DRUGS (15)
  1. ATAZANAVIR. [Suspect]
     Active Substance: ATAZANAVIR SULFATE
     Dosage: UNK UNKNOWN, UNK ()
     Route: 064
  2. ZIDOVUDINE. [Suspect]
     Active Substance: ZIDOVUDINE
     Dosage: ()
     Route: 065
  3. RITONAVIR. [Suspect]
     Active Substance: RITONAVIR
     Dosage: UNK UNKNOWN, UNK ()
     Route: 064
  4. RALTEGRAVIR POTASSIUM [Suspect]
     Active Substance: RALTEGRAVIR POTASSIUM
     Indication: HIV INFECTION
     Dosage: UNK ()
     Route: 064
  5. RITONAVIR. [Suspect]
     Active Substance: RITONAVIR
     Indication: HIV INFECTION
     Dosage: UNK ()
     Route: 064
  6. RITONAVIR. [Suspect]
     Active Substance: RITONAVIR
     Dosage: UNK ()
     Route: 064
  7. TENOFOVIR DISOPROXIL FILM COATED TABLETS [Suspect]
     Active Substance: TENOFOVIR DISOPROXIL
     Indication: HIV INFECTION
     Dosage: UNK ()
     Route: 064
  8. RITONAVIR. [Suspect]
     Active Substance: RITONAVIR
     Dosage: UNK ()
     Route: 064
  9. EMTRICITABINE [Suspect]
     Active Substance: EMTRICITABINE
     Dosage: UNK ()
     Route: 064
  10. RITONAVIR. [Suspect]
     Active Substance: RITONAVIR
     Dosage: UNK UNKNOWN, UNK ()
     Route: 064
  11. RITONAVIR. [Suspect]
     Active Substance: RITONAVIR
     Dosage: UNK ()
     Route: 064
  12. EMTRICITABINE [Suspect]
     Active Substance: EMTRICITABINE
     Indication: HIV INFECTION
     Dosage: UNK ()
     Route: 064
  13. ZIDOVUDINE. [Suspect]
     Active Substance: ZIDOVUDINE
     Indication: PROPHYLAXIS AGAINST HIV INFECTION
     Dosage: UNK ()
     Route: 064
  14. ZIDOVUDINE. [Suspect]
     Active Substance: ZIDOVUDINE
     Dosage: UNK UNKNOWN, UNK ()
     Route: 065
  15. ATAZANAVIR. [Suspect]
     Active Substance: ATAZANAVIR SULFATE
     Indication: HIV INFECTION
     Dosage: UNK ()
     Route: 064

REACTIONS (4)
  - Foetal exposure during pregnancy [Recovered/Resolved]
  - Acute lymphocytic leukaemia [Unknown]
  - Premature baby [Unknown]
  - Retinoblastoma [Unknown]

NARRATIVE: CASE EVENT DATE: 20100101
